FAERS Safety Report 24237168 (Version 1)
Quarter: 2024Q3

REPORT INFORMATION
  Report Type: Spontaneous
  Country: FR (occurrence: FR)
  Receive Date: 20240822
  Receipt Date: 20240822
  Transmission Date: 20241017
  Serious: Yes (Other)
  Sender: MYLAN
  Company Number: FR-MYLANLABS-2024M1076999

PATIENT
  Age: 53 Year
  Sex: Male

DRUGS (2)
  1. PAMIDRONATE [Suspect]
     Active Substance: PAMIDRONATE DISODIUM
     Indication: SAPHO syndrome
     Dosage: UNK
     Route: 065
     Dates: start: 202107, end: 202201
  2. PAMIDRONATE [Suspect]
     Active Substance: PAMIDRONATE DISODIUM
     Indication: Polyarteritis nodosa

REACTIONS (2)
  - Bone pain [Recovering/Resolving]
  - Off label use [Unknown]
